FAERS Safety Report 4404256-0 (Version None)
Quarter: 2004Q3

REPORT INFORMATION
  Report Type: 
  Country: None (occurrence: None)
  Receive Date: 20040719
  Receipt Date: 20040705
  Transmission Date: 20050211
  Serious: Yes (Other)
  Sender: FDA-Public Use
  Company Number: 8006708

PATIENT
  Age: 39 Year
  Sex: Female

DRUGS (6)
  1. KEPPRA [Suspect]
     Indication: EPILEPSY
     Dosage: 1500  MG/D PO
     Route: 048
  2. KEPPRA [Suspect]
     Indication: EPILEPSY
     Dosage: 1000 MG/D PO
     Route: 048
  3. PHENOBARBITAL TAB [Concomitant]
  4. URBANYL [Concomitant]
  5. DEPAKOTE [Concomitant]
  6. LAMICTAL [Concomitant]

REACTIONS (1)
  - LEUKOPENIA [None]
